FAERS Safety Report 9452418 (Version 1)
Quarter: 2013Q3

REPORT INFORMATION
  Report Type: Spontaneous
  Country: US (occurrence: US)
  Receive Date: 20130812
  Receipt Date: 20130812
  Transmission Date: 20140515
  Serious: No
  Sender: FDA-Public Use
  Company Number: US-BAYER-2013-092763

PATIENT
  Age: 77 Year
  Sex: Female

DRUGS (6)
  1. ALEVE TABLET [Suspect]
     Indication: ARTHRITIS
     Dosage: 1 DF, UNK
     Route: 048
     Dates: start: 2008
  2. BAYER ASPIRIN REGIMEN ADULT LOW STRENGTH [Concomitant]
  3. LISINOPRIL [Concomitant]
  4. LASIX [Concomitant]
  5. JANUVIA [Concomitant]
  6. METFORMIN [Concomitant]

REACTIONS (4)
  - Drug ineffective [None]
  - Incorrect drug administration duration [None]
  - Incorrect dose administered [None]
  - Off label use [None]
